FAERS Safety Report 9416924 (Version 3)
Quarter: 2015Q4

REPORT INFORMATION
  Report Type: Spontaneous
  Country: US (occurrence: US)
  Receive Date: 20130724
  Receipt Date: 20151015
  Transmission Date: 20160305
  Serious: Yes (Death, Hospitalization)
  Sender: FDA-Public Use
  Company Number: US-RANBAXY-2013US-71494

PATIENT
  Age: 28 Year
  Sex: Female

DRUGS (8)
  1. METAXALONE. [Suspect]
     Active Substance: METAXALONE
     Indication: MUSCLE RELAXANT THERAPY
     Dosage: 800 MG, TID
     Route: 065
  2. IBUPROFEN. [Suspect]
     Active Substance: IBUPROFEN
     Indication: LIGAMENT SPRAIN
     Dosage: 2400 MG, DAILY
     Route: 065
  3. VALDECOXIB [Suspect]
     Active Substance: VALDECOXIB
     Indication: PRODUCT USED FOR UNKNOWN INDICATION
     Dosage: 10 MG, DAILY
     Route: 065
  4. CYCLOBENZAPRINE [Concomitant]
     Active Substance: CYCLOBENZAPRINE
     Indication: PRODUCT USED FOR UNKNOWN INDICATION
     Route: 065
  5. METHOCARBAMOL. [Suspect]
     Active Substance: METHOCARBAMOL
     Indication: MUSCLE RELAXANT THERAPY
     Dosage: 750 MG, QID
     Route: 065
  6. VALDECOXIB [Suspect]
     Active Substance: VALDECOXIB
  7. IBUPROFEN. [Suspect]
     Active Substance: IBUPROFEN
     Indication: LIGAMENT SPRAIN
  8. IBUPROFEN. [Suspect]
     Active Substance: IBUPROFEN
     Indication: CONTUSION

REACTIONS (8)
  - Cardiomyopathy [Fatal]
  - Circumstance or information capable of leading to medication error [Unknown]
  - Gastritis [Unknown]
  - Haemorrhage intracranial [Fatal]
  - Respiratory failure [Fatal]
  - Secondary hypertension [Fatal]
  - Diabetes mellitus [Fatal]
  - Renal failure [Fatal]
